FAERS Safety Report 18079620 (Version 1)
Quarter: 2020Q3

REPORT INFORMATION
  Report Type: Spontaneous
  Country: US (occurrence: US)
  Receive Date: 20200728
  Receipt Date: 20200728
  Transmission Date: 20201103
  Serious: Yes (Hospitalization, Other)
  Sender: FDA-Public Use
  Company Number: US-ASTRAZENECA-2020SE93055

PATIENT
  Sex: Male
  Weight: 82.1 kg

DRUGS (2)
  1. SYMBICORT [Suspect]
     Active Substance: BUDESONIDE\FORMOTEROL FUMARATE DIHYDRATE
     Indication: PULMONARY SARCOIDOSIS
     Dosage: 160/4.5, 2 PUFFS, TWO TIMES A DAY
     Route: 055
     Dates: start: 2015
  2. VENTOLIN [Concomitant]
     Active Substance: ALBUTEROL SULFATE
     Indication: RESPIRATORY DISORDER
     Dosage: AS REQUIRED, 2 PUFFS WHEN FEELS NEED
     Route: 055

REACTIONS (5)
  - Product use issue [Unknown]
  - Condition aggravated [Unknown]
  - Respiratory rate decreased [Unknown]
  - Device use issue [Unknown]
  - Drug ineffective [Unknown]
